FAERS Safety Report 17839538 (Version 1)
Quarter: 2020Q2

REPORT INFORMATION
  Report Type: Report from Study
  Country: US (occurrence: US)
  Receive Date: 20200529
  Receipt Date: 20200529
  Transmission Date: 20200714
  Serious: Yes (Death)
  Sender: FDA-Public Use
  Company Number: US-BAUSCH-BL-2020-015548

PATIENT
  Age: 52 Year
  Sex: Male

DRUGS (2)
  1. SILIQ [Suspect]
     Active Substance: BRODALUMAB
     Dosage: 210 MG EVERY 2 WEEKS
     Route: 065
  2. SILIQ [Suspect]
     Active Substance: BRODALUMAB
     Indication: PRODUCT USED FOR UNKNOWN INDICATION
     Dosage: 210 MG AT WEEKS 0, 1, AND 2
     Route: 065
     Dates: start: 20180306

REACTIONS (1)
  - Death [Fatal]

NARRATIVE: CASE EVENT DATE: 20200507
